FAERS Safety Report 24103450 (Version 2)
Quarter: 2024Q3

REPORT INFORMATION
  Report Type: Spontaneous
  Country: US (occurrence: US)
  Receive Date: 20240717
  Receipt Date: 20240930
  Transmission Date: 20241017
  Serious: Yes (Other)
  Sender: JOHNSON AND JOHNSON
  Company Number: US-JNJFOC-20240725874

PATIENT
  Sex: Male

DRUGS (1)
  1. STELARA [Suspect]
     Active Substance: USTEKINUMAB
     Indication: Product used for unknown indication
     Route: 058

REACTIONS (7)
  - Pneumococcal infection [Unknown]
  - Spinal operation [Unknown]
  - Dermal cyst [Unknown]
  - Back injury [Unknown]
  - Chest pain [Unknown]
  - Anxiety [Unknown]
  - Inappropriate schedule of product administration [Unknown]
